FAERS Safety Report 10922533 (Version 3)
Quarter: 2015Q1

REPORT INFORMATION
  Report Type: Spontaneous
  Country: US (occurrence: US)
  Receive Date: 20150317
  Receipt Date: 20150331
  Transmission Date: 20150721
  Serious: Yes (Other)
  Sender: FDA-Public Use
  Company Number: 2015SP000824

PATIENT
  Age: 41 Year
  Sex: Female
  Weight: 64 kg

DRUGS (1)
  1. LATUDA [Suspect]
     Active Substance: LURASIDONE HYDROCHLORIDE
     Route: 048

REACTIONS (2)
  - Drug abuse [Recovering/Resolving]
  - Muscle twitching [Recovering/Resolving]

NARRATIVE: CASE EVENT DATE: 201501
